FAERS Safety Report 21559262 (Version 1)
Quarter: 2022Q4

REPORT INFORMATION
  Report Type: Spontaneous
  Country: US (occurrence: US)
  Receive Date: 20221107
  Receipt Date: 20221107
  Transmission Date: 20230113
  Serious: Yes (Hospitalization, Other)
  Sender: FDA-Public Use
  Company Number: US-APOTEX-2022AP014924

PATIENT
  Age: 42 Year
  Sex: Female

DRUGS (3)
  1. TIZANIDINE [Suspect]
     Active Substance: TIZANIDINE
     Indication: Product used for unknown indication
     Dosage: UNK
     Route: 065
  2. ESZOPICLONE [Suspect]
     Active Substance: ESZOPICLONE
     Indication: Product used for unknown indication
     Dosage: UNK
     Route: 065
  3. HYDROXYZINE [Suspect]
     Active Substance: HYDROXYZINE HYDROCHLORIDE
     Indication: Product used for unknown indication
     Dosage: UNK
     Route: 065

REACTIONS (9)
  - Areflexia [Recovering/Resolving]
  - Respiratory acidosis [Unknown]
  - Unresponsive to stimuli [Recovering/Resolving]
  - Perfusion brain scan abnormal [Recovered/Resolved]
  - Seizure [Recovered/Resolved]
  - Tachycardia [Recovering/Resolving]
  - Loss of consciousness [Recovering/Resolving]
  - Overdose [Recovering/Resolving]
  - Hypotension [Recovering/Resolving]
